FAERS Safety Report 7455188-5 (Version None)
Quarter: 2011Q1

REPORT INFORMATION
  Report Type: 
  Country: None (occurrence: None)
  Receive Date: 20110302
  Receipt Date: 20110105
  Transmission Date: 20110831
  Serious: No
  Sender: FDA-Public Use
  Company Number: 024948

PATIENT
  Sex: Female
  Weight: 82.5 kg

DRUGS (1)
  1. CIMZIA [Suspect]
     Indication: RHEUMATOID ARTHRITIS
     Dosage: 400 MG  1X/2 WEEKS, TWO SHOTS SUBCUTANEOUS
     Route: 058
     Dates: start: 20101214

REACTIONS (5)
  - OEDEMA PERIPHERAL [None]
  - FEELING ABNORMAL [None]
  - GAIT DISTURBANCE [None]
  - PAIN [None]
  - PAIN IN EXTREMITY [None]
